FAERS Safety Report 8377755-7 (Version None)
Quarter: 2012Q2

REPORT INFORMATION
  Report Type: 
  Country: None (occurrence: None)
  Receive Date: 20120522
  Receipt Date: 20120514
  Transmission Date: 20120825
  Serious: Yes (Death)
  Sender: FDA-Public Use
  Company Number: DE-GLAXOSMITHKLINE-D0075591A

PATIENT
  Age: 48 Year
  Sex: Male

DRUGS (2)
  1. VALPROIC ACID [Concomitant]
     Route: 048
     Dates: start: 20091101
  2. LAMOTRIGINE [Suspect]
     Indication: EPILEPSY
     Route: 048
     Dates: start: 20060701

REACTIONS (3)
  - FEBRILE INFECTION [None]
  - SUDDEN UNEXPLAINED DEATH IN EPILEPSY [None]
  - SUDDEN DEATH [None]
